FAERS Safety Report 5410564-7 (Version None)
Quarter: 2007Q3

REPORT INFORMATION
  Report Type: 
  Country: None (occurrence: None)
  Receive Date: 20070810
  Receipt Date: 20070308
  Transmission Date: 20080115
  Serious: No
  Sender: FDA-Public Use
  Company Number: A0642680A

PATIENT
  Age: 59 Year
  Sex: Male

DRUGS (4)
  1. PAXIL [Suspect]
     Indication: STRESS
     Dosage: 5MG PER DAY
     Route: 048
     Dates: start: 20070101
  2. BYETTA [Suspect]
     Dosage: 10MCG TWICE PER DAY
     Route: 042
     Dates: start: 20070103
  3. COUMADIN [Concomitant]
     Dates: start: 20060101
  4. TESTOSTERONE [Concomitant]

REACTIONS (1)
  - INTERNATIONAL NORMALISED RATIO DECREASED [None]
